FAERS Safety Report 7579696-1 (Version None)
Quarter: 2011Q2

REPORT INFORMATION
  Report Type: 
  Country: None (occurrence: None)
  Receive Date: 20110622
  Receipt Date: 20110613
  Transmission Date: 20111010
  Serious: Yes (Life-Threatening)
  Sender: FDA-Public Use
  Company Number: 953495

PATIENT
  Age: 53 Year
  Sex: Male

DRUGS (2)
  1. MARCAINE [Suspect]
     Indication: LOCAL ANAESTHESIA
  2. LIDOCAINE HCL 1.5% W/EPINEPHRINE 1:200, 000 INJECTION, USP (LIDOCAINE [Suspect]
     Indication: LOCAL ANAESTHESIA

REACTIONS (5)
  - TACHYCARDIA [None]
  - PULMONARY CONGESTION [None]
  - CARDIOGENIC SHOCK [None]
  - HYPERTENSION [None]
  - INCORRECT ROUTE OF DRUG ADMINISTRATION [None]
